FAERS Safety Report 5795210-5 (Version None)
Quarter: 2008Q2

REPORT INFORMATION
  Report Type: 
  Country: None (occurrence: None)
  Receive Date: 20080630
  Receipt Date: 20080623
  Transmission Date: 20081010
  Serious: Yes (Other)
  Sender: FDA-Public Use
  Company Number: ZA-BRISTOL-MYERS SQUIBB COMPANY-14236277

PATIENT
  Age: 67 Year
  Sex: Male

DRUGS (4)
  1. ERBITUX [Suspect]
     Indication: COLON CANCER
     Dosage: NO OF INFUSIONS-16
     Route: 042
     Dates: start: 20080118, end: 20080605
  2. IRINOTECAN HCL [Suspect]
     Indication: COLON CANCER
     Dosage: MOST RECENT INFUSION 21MAY08
     Route: 042
     Dates: start: 20071010
  3. SIMVASTATIN [Concomitant]
     Dosage: 1 DOSAGE FORM= 1 TAB
     Route: 048
     Dates: start: 20070301
  4. METRONIDAZOLE HCL [Concomitant]
     Route: 061
     Dates: start: 20070301

REACTIONS (3)
  - HYPOCALCAEMIA [None]
  - HYPOKALAEMIA [None]
  - HYPOMAGNESAEMIA [None]
